FAERS Safety Report 14577669 (Version 1)
Quarter: 2018Q1

REPORT INFORMATION
  Report Type: Spontaneous
  Country: US (occurrence: US)
  Receive Date: 20180226
  Receipt Date: 20180226
  Transmission Date: 20180509
  Serious: Yes (Hospitalization, Other)
  Sender: FDA-Public Use
  Company Number: None

PATIENT
  Age: 18 Year
  Sex: Female
  Weight: 54 kg

DRUGS (1)
  1. PROCHLORPERAZINE. [Suspect]
     Active Substance: PROCHLORPERAZINE
     Indication: NAUSEA
     Route: 042
     Dates: start: 20171218, end: 20171218

REACTIONS (16)
  - Slow speech [None]
  - Neck pain [None]
  - Eating disorder [None]
  - Tongue movement disturbance [None]
  - Reduced facial expression [None]
  - Salivary hypersecretion [None]
  - Dysphagia [None]
  - Screaming [None]
  - Seizure [None]
  - Staring [None]
  - Dyskinesia [None]
  - Pain in jaw [None]
  - Gait inability [None]
  - Protrusion tongue [None]
  - Communication disorder [None]
  - Speech disorder [None]

NARRATIVE: CASE EVENT DATE: 20171218
